FAERS Safety Report 6107984-4 (Version None)
Quarter: 2009Q1

REPORT INFORMATION
  Report Type: 
  Country: None (occurrence: None)
  Receive Date: 20090305
  Receipt Date: 20090305
  Transmission Date: 20090719
  Serious: Yes (Other)
  Sender: FDA-Public Use
  Company Number: None

PATIENT
  Age: 70 Year
  Sex: Male
  Weight: 65.7716 kg

DRUGS (3)
  1. RISPERIDONE [Suspect]
     Indication: DISTURBANCE IN ATTENTION
     Dosage: 1MG H.S. PO
     Route: 048
     Dates: start: 20090303, end: 20090304
  2. RISPERIDONE [Suspect]
     Indication: INSOMNIA
     Dosage: 1MG H.S. PO
     Route: 048
     Dates: start: 20090303, end: 20090304
  3. RISPERIDONE [Suspect]
     Indication: THINKING ABNORMAL
     Dosage: 1MG H.S. PO
     Route: 048
     Dates: start: 20090303, end: 20090304

REACTIONS (6)
  - ABNORMAL DREAMS [None]
  - BLOOD GLUCOSE INCREASED [None]
  - CONDITION AGGRAVATED [None]
  - NOCTURIA [None]
  - POOR QUALITY SLEEP [None]
  - THINKING ABNORMAL [None]
